FAERS Safety Report 24958135 (Version 1)
Quarter: 2025Q1

REPORT INFORMATION
  Report Type: Spontaneous
  Country: JP (occurrence: None)
  Receive Date: 20250212
  Receipt Date: 20250212
  Transmission Date: 20250409
  Serious: Yes (Other)
  Sender: Alvotech
  Company Number: JP-ALVOTECHPMS-2025-ALVOTECHPMS-003081

PATIENT
  Age: 52 Year
  Sex: Female

DRUGS (3)
  1. ADALIMUMAB [Suspect]
     Active Substance: ADALIMUMAB
     Indication: Subretinal fluid
     Route: 058
  2. CYCLOSPORINE [Concomitant]
     Active Substance: CYCLOSPORINE
     Indication: Subretinal fluid
     Route: 048
  3. METHOTREXATE [Concomitant]
     Active Substance: METHOTREXATE
     Indication: Subretinal fluid
     Route: 048

REACTIONS (1)
  - Drug ineffective for unapproved indication [Unknown]
